FAERS Safety Report 10496137 (Version 3)
Quarter: 2014Q4

REPORT INFORMATION
  Report Type: Report from Study
  Country: US (occurrence: US)
  Receive Date: 20141003
  Receipt Date: 20141215
  Transmission Date: 20150528
  Serious: Yes (Life-Threatening, Hospitalization, Other)
  Sender: FDA-Public Use
  Company Number: US-GLAXOSMITHKLINE-A0939591A

PATIENT
  Age: 53 Year
  Sex: Female
  Weight: 68 kg

DRUGS (8)
  1. CARBOPLATIN SOLUTION FOR INJECTION [Suspect]
     Active Substance: CARBOPLATIN
     Indication: BREAST CANCER
     Dosage: 6 DF, CYC
     Route: 042
     Dates: start: 20090115
  2. PACLITAXEL SOLUTION FOR INJECTION [Suspect]
     Active Substance: PACLITAXEL
     Indication: BREAST CANCER
     Dosage: 80 MG/M2, CYC
     Route: 042
     Dates: start: 20090115, end: 20090519
  3. CYCLOPHOSPHAMIDE. [Suspect]
     Active Substance: CYCLOPHOSPHAMIDE
     Indication: CHEMOTHERAPY
     Dosage: UNK
     Route: 065
     Dates: start: 200811, end: 200901
  4. LIPOSOMAL DOXORUBICIN [Suspect]
     Active Substance: DOXORUBICIN HYDROCHLORIDE
     Indication: CHEMOTHERAPY
     Dosage: UNK
     Route: 065
     Dates: start: 200811, end: 200901
  5. RADIATION THERAPY [Concomitant]
     Active Substance: RADIATION THERAPY
     Indication: BREAST CANCER
     Dosage: UNK, CYC
     Route: 050
     Dates: end: 20090625
  6. TRASTUZUMAB [Concomitant]
     Active Substance: TRASTUZUMAB
     Indication: BREAST CANCER
     Dosage: UNK
     Dates: end: 20100225
  7. IMODIUM [Concomitant]
     Active Substance: LOPERAMIDE HYDROCHLORIDE
     Dates: start: 20090122
  8. LAPATINIB TOSILATE TABLET [Suspect]
     Active Substance: LAPATINIB DITOSYLATE
     Indication: BREAST CANCER
     Dosage: 750 MG, QD
     Route: 048
     Dates: start: 20090115, end: 20090505

REACTIONS (1)
  - Abdominal mass [Recovering/Resolving]

NARRATIVE: CASE EVENT DATE: 20090501
